FAERS Safety Report 11218247 (Version 4)
Quarter: 2015Q3

REPORT INFORMATION
  Report Type: Spontaneous
  Country: CH (occurrence: CH)
  Receive Date: 20150625
  Receipt Date: 20150902
  Transmission Date: 20151125
  Serious: Yes (Other)
  Sender: FDA-Public Use
  Company Number: CH-JNJFOC-20150612035

PATIENT
  Age: 48 Year
  Sex: Male
  Weight: 110 kg

DRUGS (10)
  1. STELARA [Suspect]
     Active Substance: USTEKINUMAB
     Indication: PSORIASIS
     Route: 058
     Dates: start: 20150609
  2. STELARA [Suspect]
     Active Substance: USTEKINUMAB
     Indication: NAIL DISORDER
     Route: 058
     Dates: start: 20150313
  3. STELARA [Suspect]
     Active Substance: USTEKINUMAB
     Indication: PSORIATIC ARTHROPATHY
     Route: 058
     Dates: start: 20150313
  4. STELARA [Suspect]
     Active Substance: USTEKINUMAB
     Indication: PSORIASIS
     Route: 058
     Dates: start: 20150313
  5. STELARA [Suspect]
     Active Substance: USTEKINUMAB
     Indication: PSORIATIC ARTHROPATHY
     Route: 058
     Dates: start: 20150609
  6. STELARA [Suspect]
     Active Substance: USTEKINUMAB
     Indication: PSORIASIS
     Route: 058
     Dates: start: 20150213
  7. STELARA [Suspect]
     Active Substance: USTEKINUMAB
     Indication: NAIL DISORDER
     Route: 058
     Dates: start: 20150609
  8. STELARA [Suspect]
     Active Substance: USTEKINUMAB
     Indication: NAIL DISORDER
     Route: 058
     Dates: start: 20150213
  9. STELARA [Suspect]
     Active Substance: USTEKINUMAB
     Indication: PSORIATIC ARTHROPATHY
     Route: 058
     Dates: start: 20150213
  10. ATACAND [Concomitant]
     Active Substance: CANDESARTAN CILEXETIL
     Indication: HYPERTENSION
     Route: 065

REACTIONS (17)
  - Formication [Unknown]
  - White blood cell count increased [Unknown]
  - Photosensitivity reaction [Unknown]
  - Mental fatigue [Unknown]
  - Aphasia [Recovered/Resolved]
  - Speech disorder [Recovered/Resolved]
  - Off label use [Unknown]
  - Depression [Unknown]
  - Visual impairment [Recovered/Resolved]
  - Intention tremor [Unknown]
  - Palpitations [Recovered/Resolved]
  - Joint swelling [Unknown]
  - Telangiectasia [Unknown]
  - Constipation [Unknown]
  - Rash [Recovered/Resolved]
  - Arthralgia [Recovering/Resolving]
  - Postural tremor [Unknown]

NARRATIVE: CASE EVENT DATE: 2015
